FAERS Safety Report 4952050-4 (Version None)
Quarter: 2006Q1

REPORT INFORMATION
  Report Type: 
  Country: None (occurrence: None)
  Receive Date: 20060322
  Receipt Date: 20060322
  Transmission Date: 20060701
  Serious: Yes (Other)
  Sender: FDA-Public Use
  Company Number: None

PATIENT
  Sex: Male
  Weight: 95.2554 kg

DRUGS (4)
  1. MONOPRIL [Suspect]
     Indication: HYPERTENSION
     Dosage: 20 MG PO D
     Route: 048
     Dates: start: 20020501
  2. PREVECID [Concomitant]
  3. DIAZEPAM [Concomitant]
  4. SOMA [Concomitant]

REACTIONS (2)
  - BLOOD PRESSURE INADEQUATELY CONTROLLED [None]
  - DRUG INEFFECTIVE [None]
